FAERS Safety Report 9822859 (Version 1)
Quarter: 2014Q1

REPORT INFORMATION
  Report Type: Spontaneous
  Country: GB (occurrence: GB)
  Receive Date: 20140116
  Receipt Date: 20140116
  Transmission Date: 20141002
  Serious: Yes (Hospitalization, Other)
  Sender: FDA-Public Use
  Company Number: GB-WATSON-2014-00078

PATIENT
  Age: 70 Year
  Sex: Female

DRUGS (4)
  1. SERTRALINE (UNKNOWN) [Suspect]
     Indication: ANXIETY
     Dosage: 50 MG, UNKNOWN
     Route: 048
     Dates: start: 20131028, end: 20131102
  2. ZOSTAVAX [Suspect]
     Indication: PRODUCT USED FOR UNKNOWN INDICATION
     Dosage: UNK
     Route: 030
     Dates: start: 20131030, end: 20131030
  3. CLOPIDOGREL [Concomitant]
     Indication: PRODUCT USED FOR UNKNOWN INDICATION
     Dosage: UNK
     Route: 065
  4. LANSOPRAZOLE [Concomitant]
     Indication: PRODUCT USED FOR UNKNOWN INDICATION
     Dosage: UNK
     Route: 065

REACTIONS (2)
  - Syncope [Recovering/Resolving]
  - Hyponatraemia [Recovering/Resolving]
